FAERS Safety Report 15749628 (Version 1)
Quarter: 2018Q4

REPORT INFORMATION
  Report Type: Spontaneous
  Country: US (occurrence: US)
  Receive Date: 20181205
  Receipt Date: 20181205
  Transmission Date: 20190205
  Serious: Yes (Hospitalization)
  Sender: FDA-Public Use
  Company Number: None

PATIENT
  Age: 56 Year
  Sex: Female
  Weight: 75.9 kg

DRUGS (2)
  1. GEMCITABINE HYDROCHLORIDE. [Suspect]
     Active Substance: GEMCITABINE HYDROCHLORIDE
     Dates: end: 20181002
  2. CISPLATIN. [Suspect]
     Active Substance: CISPLATIN
     Dates: end: 20181002

REACTIONS (11)
  - Disease progression [None]
  - Dilatation intrahepatic duct acquired [None]
  - Packed red blood cell transfusion [None]
  - Abdominal pain [None]
  - Condition aggravated [None]
  - Treatment noncompliance [None]
  - Haemoglobin decreased [None]
  - Pancreatic cyst [None]
  - Pain [None]
  - Nausea [None]
  - Vomiting [None]

NARRATIVE: CASE EVENT DATE: 20181023
